FAERS Safety Report 8845229 (Version 2)
Quarter: 2013Q2

REPORT INFORMATION
  Report Type: Spontaneous
  Country: US (occurrence: None)
  Receive Date: 20121009
  Receipt Date: 20130628
  Transmission Date: 20140414
  Serious: Yes (Hospitalization)
  Sender: FDA-Public Use
  Company Number: 2012PROUSA02051

PATIENT
  Age: 65 Year
  Sex: Male
  Weight: 73 kg

DRUGS (13)
  1. PROVENGE (SIPULEUCEL-T) SUSPENSION [Suspect]
     Indication: PROSTATE CANCER METASTATIC
     Dosage: 250 ML, SINGLE, INTRAVENOUS
     Route: 042
     Dates: start: 20120517, end: 20120517
  2. HYDROXYCHLOROQUINE (HYDROXYCHLOROQUINE SULFATE) [Concomitant]
  3. LUPRON DEPOT (LEUPRORELIN ACETATE) [Concomitant]
  4. AMLODIPINE (AMLODIPINE) [Concomitant]
  5. LOVASTATIN (LOVASTATIN) [Concomitant]
  6. ACETAMINIPHEN (PARACETAMOL) [Concomitant]
  7. NAPROXEN SODIUM (NAPROXEN SODIUM) [Concomitant]
  8. WELLBUTRIN (BUPROPION HYDROCHLORIDE) [Concomitant]
  9. MULTIVITAMINS (ASCORBIC ACID, ERGOCALCIFEROL, FOLIC ACID, NICOTINAMIDE, PANTHENOL, RIBOFLAVIN, THIAMINE HYDROCHLORIDE) [Concomitant]
  10. ELOCON (MOMETASONE FUROATE) [Concomitant]
  11. MECLIZINE HCL (MECLOZINE HYDROCHLORIDE) [Concomitant]
  12. CASODEX (BICALUTAMIDE) [Concomitant]
  13. AMITRIPTYLINE (AMITRIPTYLINE HYDROCHLORIDE) [Concomitant]

REACTIONS (10)
  - Haemorrhage intracranial [None]
  - Sepsis [None]
  - Dehydration [None]
  - Fall [None]
  - Escherichia bacteraemia [None]
  - Subdural haematoma [None]
  - Subarachnoid haemorrhage [None]
  - Cerebral infarction [None]
  - Craniocerebral injury [None]
  - Metastases to central nervous system [None]
